FAERS Safety Report 5567669-X (Version None)
Quarter: 2007Q4

REPORT INFORMATION
  Report Type: 
  Country: None (occurrence: None)
  Receive Date: 20071219
  Receipt Date: 20071207
  Transmission Date: 20080405
  Serious: Yes (Disabling, Other)
  Sender: FDA-Public Use
  Company Number: GB-PFIZER INC-2007103901

PATIENT
  Age: 60 Year
  Sex: Female

DRUGS (5)
  1. CHANTIX [Suspect]
     Dosage: TEXT:1MG
     Route: 048
     Dates: start: 20071105, end: 20071112
  2. AMITRIPTLINE HCL [Concomitant]
     Route: 048
  3. ATENOLOL [Concomitant]
     Route: 048
  4. FOSINOPRIL SODIUM [Concomitant]
     Route: 048
  5. METFORMIN HCL [Concomitant]
     Route: 048

REACTIONS (4)
  - FEELING HOT [None]
  - HYPERHIDROSIS [None]
  - INFLUENZA LIKE ILLNESS [None]
  - PANIC ATTACK [None]
